FAERS Safety Report 22923973 (Version 3)
Quarter: 2024Q1

REPORT INFORMATION
  Report Type: Spontaneous
  Country: US (occurrence: US)
  Receive Date: 20230908
  Receipt Date: 20240216
  Transmission Date: 20240410
  Serious: Yes (Other)
  Sender: FDA-Public Use
  Company Number: US-RADIUS HEALTH, INC.-2023US004445

PATIENT
  Sex: Female

DRUGS (6)
  1. TYMLOS [Suspect]
     Active Substance: ABALOPARATIDE
     Indication: Osteoporosis
     Dosage: 80 MICROGRAM, QD
     Route: 058
     Dates: start: 20230126
  2. WEGOVY [Concomitant]
     Active Substance: SEMAGLUTIDE
     Indication: Product used for unknown indication
     Dosage: UNK
     Dates: start: 20230401, end: 20230822
  3. PANTOPRAZOLE [Concomitant]
     Active Substance: PANTOPRAZOLE
     Indication: Product used for unknown indication
     Dosage: UNK
     Dates: start: 20230822
  4. HYDROCHLOROTHIAZIDE [Concomitant]
     Active Substance: HYDROCHLOROTHIAZIDE
     Indication: Product used for unknown indication
     Dosage: UNK
     Dates: start: 20210610
  5. ROSUVASTATIN [Concomitant]
     Active Substance: ROSUVASTATIN
     Indication: Product used for unknown indication
     Dosage: UNK
     Dates: start: 20210610
  6. PHENTERMINE [Concomitant]
     Active Substance: PHENTERMINE
     Indication: Product used for unknown indication
     Dosage: UNK
     Dates: start: 20210610, end: 20230822

REACTIONS (2)
  - Condition aggravated [Unknown]
  - Back pain [Not Recovered/Not Resolved]
